FAERS Safety Report 8625452 (Version 3)
Quarter: 2014Q2

REPORT INFORMATION
  Report Type: Report from Study
  Country: FR (occurrence: FR)
  Receive Date: 20120620
  Receipt Date: 20140403
  Transmission Date: 20141212
  Serious: Yes (Other)
  Sender: FDA-Public Use
  Company Number: PHHY2012FR051872

PATIENT
  Sex: Female
  Weight: 55 kg

DRUGS (3)
  1. ACLASTA/ZOLEDRONATE [Suspect]
     Indication: OSTEOPOROSIS
     Dosage: 5 MG, UNK
     Route: 042
     Dates: start: 20120403
  2. DOLIPRANE [Concomitant]
     Dates: start: 2002
  3. TOPALGIC [Concomitant]
     Dates: start: 2002

REACTIONS (4)
  - Cerebral ischaemia [Recovered/Resolved]
  - Atrial fibrillation [Recovered/Resolved]
  - Arrhythmia [Recovered/Resolved]
  - Hemianopia homonymous [Recovered/Resolved]
